FAERS Safety Report 4378503-8 (Version None)
Quarter: 2004Q2

REPORT INFORMATION
  Report Type: 
  Country: None (occurrence: None)
  Receive Date: 20040609
  Receipt Date: 20040601
  Transmission Date: 20050107
  Serious: Yes (Other)
  Sender: FDA-Public Use
  Company Number: 200411003BCC

PATIENT
  Age: 37 Year
  Sex: Male
  Weight: 86.1834 kg

DRUGS (2)
  1. ALKA-SELTZER PLUS COLD [Suspect]
     Indication: NASOPHARYNGITIS
     Dosage: 500//10/4 MG, ORAL
     Route: 048
     Dates: start: 20040127, end: 20040128
  2. DILANTIN [Concomitant]

REACTIONS (2)
  - EPISTAXIS [None]
  - HAEMATEMESIS [None]
